FAERS Safety Report 20343230 (Version 2)
Quarter: 2022Q2

REPORT INFORMATION
  Report Type: Report from Study
  Country: JP (occurrence: JP)
  Receive Date: 20220117
  Receipt Date: 20220418
  Transmission Date: 20220721
  Serious: Yes (Death, Life-Threatening, Hospitalization, Other)
  Sender: FDA-Public Use
  Company Number: JP-NOVARTISPH-NVSJ2021JP008329

PATIENT
  Age: 58 Year
  Sex: Male
  Weight: 76.6 kg

DRUGS (14)
  1. KYMRIAH [Suspect]
     Active Substance: TISAGENLECLEUCEL
     Indication: Diffuse large B-cell lymphoma
     Dosage: 2.9X10^8
     Route: 041
     Dates: start: 20210413, end: 20210413
  2. KYMRIAH [Suspect]
     Active Substance: TISAGENLECLEUCEL
     Indication: Non-Hodgkin^s lymphoma
  3. FLUDARABINE PHOSPHATE [Concomitant]
     Active Substance: FLUDARABINE PHOSPHATE
     Indication: Chemotherapy
     Dosage: 75 MG
     Route: 065
     Dates: start: 20210408
  4. CYCLOPHOSPHAMIDE [Concomitant]
     Active Substance: CYCLOPHOSPHAMIDE
     Indication: Chemotherapy
     Dosage: 750 MG
     Route: 065
     Dates: start: 20210408
  5. RITUXIMAB [Concomitant]
     Active Substance: RITUXIMAB
     Indication: Diffuse large B-cell lymphoma
     Dosage: UNK, 1 CYCLE
     Route: 065
     Dates: start: 20210316
  6. RITUXIMAB [Concomitant]
     Active Substance: RITUXIMAB
     Indication: Non-Hodgkin^s lymphoma
  7. ETOPOSIDE [Concomitant]
     Active Substance: ETOPOSIDE
     Indication: Diffuse large B-cell lymphoma
     Dosage: UNK, 1 CYCLE
     Route: 065
     Dates: start: 20210316
  8. ETOPOSIDE [Concomitant]
     Active Substance: ETOPOSIDE
     Indication: Non-Hodgkin^s lymphoma
  9. IFOSFAMIDE [Concomitant]
     Active Substance: IFOSFAMIDE
     Indication: Diffuse large B-cell lymphoma
     Dosage: UNK, 1 CYCLE
     Route: 065
     Dates: start: 20210316
  10. IFOSFAMIDE [Concomitant]
     Active Substance: IFOSFAMIDE
     Indication: Non-Hodgkin^s lymphoma
  11. CARBOPLATIN [Concomitant]
     Active Substance: CARBOPLATIN
     Indication: Diffuse large B-cell lymphoma
     Dosage: UNK, 1 CYCLE
     Route: 065
     Dates: start: 20210316
  12. CARBOPLATIN [Concomitant]
     Active Substance: CARBOPLATIN
     Indication: Non-Hodgkin^s lymphoma
  13. PLATELETS [Concomitant]
     Active Substance: HUMAN PLATELET, ALLOGENIC
     Indication: Product used for unknown indication
     Dosage: UNK
     Route: 065
  14. HUMAN RED BLOOD CELL [Concomitant]
     Active Substance: HUMAN RED BLOOD CELL
     Indication: Product used for unknown indication
     Dosage: UNK
     Route: 065

REACTIONS (11)
  - Diffuse large B-cell lymphoma [Fatal]
  - Malignant neoplasm progression [Fatal]
  - Hepatic failure [Unknown]
  - Cytokine release syndrome [Recovered/Resolved]
  - Pyrexia [Unknown]
  - Hypoxia [Unknown]
  - Hepatotoxicity [Recovered/Resolved]
  - Amylase increased [Not Recovered/Not Resolved]
  - Cellulitis staphylococcal [Unknown]
  - Neutrophil count decreased [Unknown]
  - Haemoglobin decreased [Unknown]

NARRATIVE: CASE EVENT DATE: 20210417
